FAERS Safety Report 13406991 (Version 1)
Quarter: 2017Q2

REPORT INFORMATION
  Report Type: Report from Study
  Country: None (occurrence: NL)
  Receive Date: 20170405
  Receipt Date: 20170405
  Transmission Date: 20170830
  Serious: Yes (Death)
  Sender: FDA-Public Use
  Company Number: NL-ABBVIE-17P-114-1931409-00

PATIENT
  Age: 71 Year
  Sex: Male
  Weight: 71 kg

DRUGS (2)
  1. ACENOCOUMAROL [Concomitant]
     Active Substance: ACENOCOUMAROL
     Indication: PRODUCT USED FOR UNKNOWN INDICATION
     Dosage: ACCORDING TO SCHEDULE
     Route: 048
  2. LUCRIN DEPOT [Suspect]
     Active Substance: LEUPROLIDE ACETATE
     Indication: PROSTATE CANCER
     Route: 050
     Dates: start: 20140707, end: 20161130

REACTIONS (1)
  - Death [Fatal]

NARRATIVE: CASE EVENT DATE: 20170226
